FAERS Safety Report 9751464 (Version 1)
Quarter: 2013Q4

REPORT INFORMATION
  Report Type: Spontaneous
  Country: US (occurrence: US)
  Receive Date: 20131212
  Receipt Date: 20131212
  Transmission Date: 20140711
  Serious: Yes (Other)
  Sender: FDA-Public Use
  Company Number: US-ALKERMES INC.-ALK-2013-002291

PATIENT
  Sex: 0

DRUGS (2)
  1. VIVITROL [Suspect]
     Indication: ALCOHOLISM
     Dosage: 380 MG, QMO
     Route: 030
     Dates: start: 20131017, end: 20131017
  2. LIBRIUM [Concomitant]
     Indication: ALCOHOL DETOXIFICATION
     Dosage: UNK, QD
     Dates: start: 20131016

REACTIONS (3)
  - Ataxia [Unknown]
  - Amnesia [Unknown]
  - Convulsion [Not Recovered/Not Resolved]
